FAERS Safety Report 7016837-9 (Version None)
Quarter: 2010Q3

REPORT INFORMATION
  Report Type: 
  Country: None (occurrence: None)
  Receive Date: 20100927
  Receipt Date: 20100915
  Transmission Date: 20110219
  Serious: Yes (Hospitalization)
  Sender: FDA-Public Use
  Company Number: GB-WATSON-2010-12702

PATIENT
  Age: 50 Year
  Sex: Male

DRUGS (4)
  1. CABERGOLINE [Suspect]
     Indication: PARKINSON'S DISEASE
     Dosage: 6 MG, DAILY
  2. AMANTADINE [Suspect]
     Indication: PARKINSON'S DISEASE
     Dosage: 100 MG, DAILY
  3. LEVODOPA [Suspect]
     Indication: PARKINSON'S DISEASE
     Dosage: 500 MG, DAILY
  4. PERGOLIDE [Suspect]
     Indication: PARKINSON'S DISEASE
     Dosage: 3 MG, DAILY

REACTIONS (2)
  - DOPAMINE DYSREGULATION SYNDROME [None]
  - DRUG ABUSE [None]
